FAERS Safety Report 6595473-2 (Version None)
Quarter: 2010Q1

REPORT INFORMATION
  Report Type: 
  Country: None (occurrence: None)
  Receive Date: 20100222
  Receipt Date: 20100222
  Transmission Date: 20100710
  Serious: Yes (Hospitalization)
  Sender: FDA-Public Use
  Company Number: None

PATIENT
  Sex: Female

DRUGS (1)
  1. CREST WHITESTRIPS OR CREST WHITESTRIPS CLASSIC (HYDROGEN PEROXIDE 5.3- [Suspect]
     Dosage: 1/DAY INTRAORAL
     Route: 048
     Dates: start: 20100113, end: 20100120

REACTIONS (13)
  - DRUG HYPERSENSITIVITY [None]
  - GINGIVAL ABSCESS [None]
  - GINGIVAL INFECTION [None]
  - GINGIVAL SWELLING [None]
  - IMPAIRED WORK ABILITY [None]
  - PERIORBITAL OEDEMA [None]
  - SECRETION DISCHARGE [None]
  - SENSITIVITY OF TEETH [None]
  - STAPHYLOCOCCAL INFECTION [None]
  - STREPTOCOCCAL INFECTION [None]
  - SWELLING FACE [None]
  - TOOTH ABSCESS [None]
  - TOOTH INFECTION [None]
